FAERS Safety Report 24894654 (Version 4)
Quarter: 2025Q1

REPORT INFORMATION
  Report Type: Report from Study
  Country: US (occurrence: US)
  Receive Date: 20250128
  Receipt Date: 20250303
  Transmission Date: 20250409
  Serious: Yes (Hospitalization, Other)
  Sender: ALEXION PHARMACEUTICALS
  Company Number: US-AstraZeneca-CH-00792071A

PATIENT
  Age: 64 Year

DRUGS (1)
  1. SOLIRIS [Suspect]
     Active Substance: ECULIZUMAB
     Indication: Myasthenia gravis

REACTIONS (8)
  - Clostridium difficile infection [Recovering/Resolving]
  - Diverticulitis [Recovering/Resolving]
  - Pulmonary thrombosis [Recovering/Resolving]
  - Thrombosis [Recovering/Resolving]
  - Parkinson^s disease [Unknown]
  - Vascular access site pain [Unknown]
  - Dehydration [Recovering/Resolving]
  - Loss of personal independence in daily activities [Unknown]
